FAERS Safety Report 10722830 (Version 1)
Quarter: 2015Q1

REPORT INFORMATION
  Report Type: Spontaneous
  Country: US (occurrence: US)
  Receive Date: 20150120
  Receipt Date: 20150120
  Transmission Date: 20150721
  Serious: No
  Sender: FDA-Public Use
  Company Number: US-TEVA-469758USA

PATIENT
  Sex: Female

DRUGS (1)
  1. CROMOGLICIC ACID [Suspect]
     Active Substance: CROMOLYN

REACTIONS (2)
  - Cough [Unknown]
  - Wrong technique in drug usage process [Unknown]
